FAERS Safety Report 8819963 (Version 1)
Quarter: 2012Q4

REPORT INFORMATION
  Report Type: 
  Country: US (occurrence: US)
  Receive Date: 20121001
  Receipt Date: 20121001
  Transmission Date: 20130627
  Serious: No
  Sender: FDA-Public Use
  Company Number: US-PFIZER INC-2012238713

PATIENT

DRUGS (2)
  1. EFFEXOR XR [Suspect]
     Dosage: 75 mg, UNK
  2. PRISTIQ [Suspect]
     Dosage: UNK

REACTIONS (3)
  - Withdrawal syndrome [Unknown]
  - Anxiety [Unknown]
  - Headache [Unknown]
